FAERS Safety Report 5523983-5 (Version None)
Quarter: 2007Q4

REPORT INFORMATION
  Report Type: 
  Country: None (occurrence: None)
  Receive Date: 20071121
  Receipt Date: 20071109
  Transmission Date: 20080405
  Serious: Yes (Hospitalization)
  Sender: FDA-Public Use
  Company Number: JP-GENENTECH-247050

PATIENT
  Sex: Male

DRUGS (12)
  1. BEVACIZUMAB [Suspect]
     Indication: COLORECTAL CANCER
     Dosage: 5 MG/KG, QD
     Route: 042
     Dates: start: 20070725
  2. OXALIPLATIN [Concomitant]
     Indication: COLON CANCER
     Dates: start: 20070725
  3. FLUOROURACIL [Concomitant]
     Indication: COLON CANCER
     Dates: start: 20070725
  4. ISOVORIN [Concomitant]
     Indication: COLON CANCER
     Dates: start: 20070725
  5. NIFEDIPINE [Concomitant]
     Indication: PAIN
     Dates: start: 20070725
  6. LOXOPROFEN [Concomitant]
     Indication: DRUG USE FOR UNKNOWN INDICATION
  7. AMARYL [Concomitant]
     Indication: DRUG USE FOR UNKNOWN INDICATION
  8. SENNOSIDE [Concomitant]
     Indication: DRUG USE FOR UNKNOWN INDICATION
     Dates: end: 20070817
  9. MAGNESIUM OXIDE [Concomitant]
     Indication: DRUG USE FOR UNKNOWN INDICATION
     Dates: end: 20070817
  10. FAMOTIDINE [Concomitant]
     Indication: DRUG USE FOR UNKNOWN INDICATION
     Dates: end: 20070817
  11. ZOLPIDEM TARTRATE [Concomitant]
     Indication: DRUG USE FOR UNKNOWN INDICATION
  12. FOLINIC ACID [Concomitant]
     Indication: COLON CANCER METASTATIC
     Dates: start: 20070725

REACTIONS (4)
  - DEPRESSED LEVEL OF CONSCIOUSNESS [None]
  - EMBOLISM [None]
  - HYPERTENSION [None]
  - SOMNOLENCE [None]
